FAERS Safety Report 5228539-X (Version None)
Quarter: 2007Q1

REPORT INFORMATION
  Report Type: 
  Country: None (occurrence: None)
  Receive Date: 20070205
  Receipt Date: 20070124
  Transmission Date: 20070707
  Serious: Yes (Other)
  Sender: FDA-Public Use
  Company Number: US-AVENTIS-200710558US

PATIENT
  Sex: Female

DRUGS (3)
  1. KETEK [Suspect]
     Route: 048
     Dates: start: 20061108, end: 20061114
  2. LOVASTATIN [Concomitant]
     Dosage: DOSE: UNK
     Dates: end: 20061108
  3. UNKNOWN DRUG [Concomitant]

REACTIONS (4)
  - ALANINE AMINOTRANSFERASE INCREASED [None]
  - ASPARTATE AMINOTRANSFERASE INCREASED [None]
  - PYREXIA [None]
  - TRANSAMINASES INCREASED [None]
